FAERS Safety Report 6381133-X (Version None)
Quarter: 2009Q3

REPORT INFORMATION
  Report Type: 
  Country: None (occurrence: None)
  Receive Date: 20090925
  Receipt Date: 20090925
  Transmission Date: 20100115
  Serious: Yes (Life-Threatening)
  Sender: FDA-Public Use
  Company Number: None

PATIENT
  Age: 47 Year
  Sex: Female
  Weight: 71.6683 kg

DRUGS (1)
  1. SEROQUEL [Suspect]
     Indication: DEPRESSION
     Dosage: 200 ONCE PO ONCE
     Route: 048
     Dates: start: 20090919, end: 20090919

REACTIONS (6)
  - ABASIA [None]
  - ASTHENIA [None]
  - MOBILITY DECREASED [None]
  - PALPITATIONS [None]
  - RESPIRATORY DISORDER [None]
  - TACHYCARDIA [None]
